FAERS Safety Report 10044424 (Version 1)
Quarter: 2014Q1

REPORT INFORMATION
  Report Type: Spontaneous
  Country: CA (occurrence: None)
  Receive Date: 20140326
  Receipt Date: 20140326
  Transmission Date: 20141002
  Serious: Yes (Other)
  Sender: FDA-Public Use
  Company Number: AUR-APL-2014-03809

PATIENT
  Age: 52 Year
  Sex: Male

DRUGS (3)
  1. LEVETIRACETAM [Suspect]
     Indication: CONVULSION
     Dosage: 1500 MG, 2 IN 1 D
  2. CLOBAZAM (CLOBAZAM) [Suspect]
     Indication: CONVULSION
     Dosage: 10 MG 2 IN 1 D
  3. VALPROIC ACID (VALPROIC ACID) [Suspect]
     Indication: CONVULSION
     Dosage: 500 MG, 3 IN 1 D

REACTIONS (4)
  - Somnolence [None]
  - Depressed level of consciousness [None]
  - Drug effect incomplete [None]
  - Diarrhoea [None]
